FAERS Safety Report 13950101 (Version 1)
Quarter: 2017Q3

REPORT INFORMATION
  Report Type: Spontaneous
  Country: US (occurrence: US)
  Receive Date: 20170908
  Receipt Date: 20170908
  Transmission Date: 20171128
  Serious: Yes (Other)
  Sender: FDA-Public Use
  Company Number: US-ROCHE-1135706

PATIENT
  Sex: Male

DRUGS (19)
  1. RITUXAN [Suspect]
     Active Substance: RITUXIMAB
     Dosage: THIRD CYCLE (DAY 1)
     Route: 042
  2. MITOXANTRONE [Concomitant]
     Active Substance: MITOXANTRONE HYDROCHLORIDE
     Dosage: DAY 1
     Route: 042
  3. GCSF OR GMCSF [Concomitant]
     Dosage: ON DAY 4
     Route: 058
  4. BACTRIM DS [Concomitant]
     Active Substance: SULFAMETHOXAZOLE\TRIMETHOPRIM
     Dosage: FOR 7 DAYS
     Route: 048
  5. DEXAMETHASONE. [Concomitant]
     Active Substance: DEXAMETHASONE
     Dosage: DAILY FOR 3 DAYS
     Route: 065
  6. BENADRYL [Concomitant]
     Active Substance: DIPHENHYDRAMINE HYDROCHLORIDE
     Route: 065
  7. CIPRO [Concomitant]
     Active Substance: CIPROFLOXACIN HYDROCHLORIDE
     Route: 065
  8. PREDNISONE. [Concomitant]
     Active Substance: PREDNISONE
     Route: 065
     Dates: start: 199903
  9. FLUDARABINE [Concomitant]
     Active Substance: FLUDARABINE PHOSPHATE
     Dosage: ON DAY 1, DAY 2 , DAY 3
     Route: 042
  10. GCSF OR GMCSF [Concomitant]
     Dosage: ON DAY 4
     Route: 058
  11. VINCRISTINE [Concomitant]
     Active Substance: VINCRISTINE
     Route: 065
     Dates: start: 199903
  12. FLUDARABINE [Concomitant]
     Active Substance: FLUDARABINE PHOSPHATE
     Dosage: ON DAY 1, DAY 2, DAY 3
     Route: 065
  13. TAGAMET [Concomitant]
     Active Substance: CIMETIDINE
     Route: 042
  14. CYCLOPHOSPHAMID [Concomitant]
     Active Substance: CYCLOPHOSPHAMIDE
     Route: 065
     Dates: start: 199903
  15. MITOXANTRONE [Concomitant]
     Active Substance: MITOXANTRONE HYDROCHLORIDE
     Dosage: ON DAY 1
     Route: 065
  16. RITUXAN [Suspect]
     Active Substance: RITUXIMAB
     Indication: CHRONIC LYMPHOCYTIC LEUKAEMIA
     Route: 065
     Dates: start: 19990309
  17. ANZEMET [Concomitant]
     Active Substance: DOLASETRON MESYLATE
  18. DOXORUBICIN [Concomitant]
     Active Substance: DOXORUBICIN
     Route: 065
     Dates: start: 199903
  19. DECADRON [Concomitant]
     Active Substance: DEXAMETHASONE

REACTIONS (10)
  - Discomfort [Unknown]
  - Asthenia [Unknown]
  - Eyelid oedema [Unknown]
  - Nausea [Unknown]
  - Diarrhoea [Unknown]
  - Hyperhidrosis [Unknown]
  - Pain [Unknown]
  - Thrombocytopenia [Unknown]
  - Malaise [Unknown]
  - Neutropenia [Unknown]
